FAERS Safety Report 8420329 (Version 4)
Quarter: 2013Q1

REPORT INFORMATION
  Report Type: Spontaneous
  Country: US (occurrence: US)
  Receive Date: 20120222
  Receipt Date: 20130114
  Transmission Date: 20140127
  Serious: No
  Sender: FDA-Public Use
  Company Number: US-PFIZER INC-2012043653

PATIENT
  Age: 45 Year
  Sex: Female
  Weight: 58.96 kg

DRUGS (3)
  1. XALKORI [Suspect]
     Indication: LUNG NEOPLASM MALIGNANT
     Dosage: 250 MG, 2X/DAY
     Route: 048
     Dates: start: 20111226
  2. CELEXA [Concomitant]
     Indication: ANXIETY
     Dosage: 40 MG, 1X/DAY
  3. CELEXA [Concomitant]
     Indication: DEPRESSION

REACTIONS (1)
  - Foreign body [Not Recovered/Not Resolved]
